FAERS Safety Report 6783672-6 (Version None)
Quarter: 2010Q2

REPORT INFORMATION
  Report Type: 
  Country: None (occurrence: None)
  Receive Date: 20100622
  Receipt Date: 20100611
  Transmission Date: 20101027
  Serious: Yes (Hospitalization)
  Sender: FDA-Public Use
  Company Number: FR-ROCHE-709050

PATIENT
  Sex: Male

DRUGS (3)
  1. PEGASYS [Suspect]
     Route: 058
     Dates: start: 20100313, end: 20100329
  2. COPEGUS [Suspect]
     Route: 048
     Dates: start: 20100313, end: 20100604
  3. LYRICA [Concomitant]
     Indication: AXONAL NEUROPATHY
     Route: 048

REACTIONS (3)
  - PURPURA [None]
  - SEGMENTED HYALINISING VASCULITIS [None]
  - VASCULITIS [None]
